FAERS Safety Report 9251863 (Version 4)
Quarter: 2014Q2

REPORT INFORMATION
  Report Type: Spontaneous
  Country: US (occurrence: US)
  Receive Date: 20130424
  Receipt Date: 20140514
  Transmission Date: 20141212
  Serious: Yes (Disabling, Other)
  Sender: FDA-Public Use
  Company Number: US-ASTRAZENECA-2013SE27423

PATIENT
  Age: 49 Year
  Sex: Female
  Weight: 84.8 kg

DRUGS (29)
  1. NEXIUM [Suspect]
     Indication: GASTROOESOPHAGEAL REFLUX DISEASE
     Route: 048
     Dates: start: 1996, end: 2010
  2. NEXIUM [Suspect]
     Indication: DYSPEPSIA
     Route: 048
     Dates: start: 1996, end: 2010
  3. NEXIUM [Suspect]
     Indication: GASTROOESOPHAGEAL REFLUX DISEASE
     Route: 048
     Dates: start: 20030209
  4. NEXIUM [Suspect]
     Indication: DYSPEPSIA
     Route: 048
     Dates: start: 20030209
  5. NEXIUM [Suspect]
     Indication: GASTROOESOPHAGEAL REFLUX DISEASE
     Route: 048
     Dates: start: 20030603
  6. NEXIUM [Suspect]
     Indication: DYSPEPSIA
     Route: 048
     Dates: start: 20030603
  7. NEXIUM [Suspect]
     Indication: GASTROOESOPHAGEAL REFLUX DISEASE
     Route: 048
     Dates: start: 20070523
  8. NEXIUM [Suspect]
     Indication: DYSPEPSIA
     Route: 048
     Dates: start: 20070523
  9. PROTONIX [Concomitant]
     Indication: GASTROOESOPHAGEAL REFLUX DISEASE
  10. PROTONIX [Concomitant]
     Indication: DYSPEPSIA
  11. PROTONIX [Concomitant]
     Indication: GASTROOESOPHAGEAL REFLUX DISEASE
     Dates: start: 20120326
  12. PROTONIX [Concomitant]
     Indication: DYSPEPSIA
     Dates: start: 20120326
  13. PEPTO BISMOL [Concomitant]
     Indication: DYSPEPSIA
     Dosage: AS NEEDED
  14. CALTRATE [Concomitant]
  15. FISH OIL [Concomitant]
  16. MULTIVITAMIN [Concomitant]
  17. VITAMIN B COMPLEX [Concomitant]
  18. NIACIN [Concomitant]
  19. CLONIDINE [Concomitant]
  20. LORAZEPAM [Concomitant]
     Dates: start: 20020128
  21. METOPROLOL [Concomitant]
  22. TRAMADOL [Concomitant]
  23. PROPOXYPHENE [Concomitant]
  24. OMEPRAZOLE [Concomitant]
     Dates: start: 20120125
  25. LIPITOR [Concomitant]
     Indication: BLOOD CHOLESTEROL INCREASED
  26. COZAAR [Concomitant]
     Dates: start: 20010227
  27. ESTROGEN [Concomitant]
  28. TESTOSTERONE ENAN [Concomitant]
  29. ESTRADIOL [Concomitant]
     Dates: start: 20010427

REACTIONS (12)
  - Ankle fracture [Unknown]
  - Joint dislocation [Unknown]
  - Osteoporosis [Unknown]
  - Bone disorder [Unknown]
  - Upper limb fracture [Unknown]
  - Foot fracture [Unknown]
  - Osteopenia [Unknown]
  - Cardiac disorder [Unknown]
  - Arthritis [Unknown]
  - Vitamin D deficiency [Unknown]
  - Osteoarthritis [Unknown]
  - Depression [Unknown]
